FAERS Safety Report 8125453-7 (Version None)
Quarter: 2012Q1

REPORT INFORMATION
  Report Type: 
  Country: None (occurrence: None)
  Receive Date: 20120209
  Receipt Date: 20120125
  Transmission Date: 20120608
  Serious: Yes (Hospitalization, Other)
  Sender: FDA-Public Use
  Company Number: DE-ARROW GEN-2012-01100

PATIENT
  Sex: Male
  Weight: 3.7 kg

DRUGS (9)
  1. MORPHINE SULFATE [Concomitant]
     Indication: PAIN
     Dosage: 40 MG/D, 3 TO 4 TIMES/WEEK, 20 MG/D MAX
     Route: 064
     Dates: start: 20101126, end: 20110104
  2. CYMBALTA [Concomitant]
     Indication: DEPRESSION
     Dosage: 30 MG, BID
     Route: 064
     Dates: start: 20101126, end: 20110104
  3. TRUXAL                             /00012102/ [Concomitant]
     Indication: DEPRESSION
     Dosage: 50 MG, DAILY
     Route: 064
     Dates: start: 20101126, end: 20110104
  4. ESCITALOPRAM [Concomitant]
     Indication: DEPRESSION
     Dosage: 30 MG, DAILY
     Route: 064
     Dates: start: 20101126, end: 20110104
  5. VOMEX A                            /00019501/ [Concomitant]
     Indication: VOMITING IN PREGNANCY
     Dosage: 50 MG, TID
     Route: 064
     Dates: start: 20110107, end: 20110315
  6. FOLIC ACID [Concomitant]
     Indication: PROPHYLAXIS OF NEURAL TUBE DEFECT
     Dosage: 0.4 MG, DAILY
     Route: 064
  7. OXYCODONE HCL [Suspect]
     Indication: PAIN
     Dosage: 30-10-30 MG/D, REDUCED TEMPORARILY TO 10 MG/D
     Route: 064
     Dates: start: 20101126, end: 20110822
  8. SERTRALINE HYDROCHLORIDE [Suspect]
     Indication: DEPRESSION
     Dosage: 50 MG, DAILY
     Route: 064
     Dates: start: 20110107, end: 20110822
  9. AMITRIPTYLINE HCL [Concomitant]
     Indication: DEPRESSION
     Dosage: 150 MG, DAILY
     Route: 064
     Dates: start: 20101126, end: 20110104

REACTIONS (2)
  - DRUG WITHDRAWAL SYNDROME NEONATAL [None]
  - NEONATAL RESPIRATORY DISTRESS SYNDROME [None]
